FAERS Safety Report 17284467 (Version 2)
Quarter: 2020Q4

REPORT INFORMATION
  Report Type: Spontaneous
  Country: HU (occurrence: HU)
  Receive Date: 20200117
  Receipt Date: 20201130
  Transmission Date: 20210113
  Serious: Yes (Life-Threatening, Hospitalization, Other)
  Sender: FDA-Public Use
  Company Number: HU-GLAXOSMITHKLINE-HU2020GSK009277

PATIENT
  Age: 19 Year
  Sex: Female

DRUGS (2)
  1. VALPROATE [Interacting]
     Active Substance: VALPROIC ACID
     Indication: SCHIZOPHRENIA
     Dosage: UNK
     Dates: end: 20181025
  2. LAMOTRIGINE. [Suspect]
     Active Substance: LAMOTRIGINE
     Indication: SCHIZOPHRENIA
     Dosage: 100 MG (2 X50 MG)
     Dates: start: 20181026, end: 20181113

REACTIONS (24)
  - Toxic epidermal necrolysis [Recovering/Resolving]
  - Hepatic enzyme increased [Unknown]
  - Pigmentation disorder [Unknown]
  - Oropharyngeal pain [Unknown]
  - Rash [Recovering/Resolving]
  - Skin discharge [Recovering/Resolving]
  - Scar [Unknown]
  - Skin necrosis [Recovering/Resolving]
  - Palmar-plantar erythrodysaesthesia syndrome [Recovering/Resolving]
  - Acute respiratory distress syndrome [Unknown]
  - Blepharitis [Unknown]
  - Oral pain [Unknown]
  - Eye irritation [Unknown]
  - Nikolsky^s sign [Unknown]
  - Drug interaction [Unknown]
  - Influenza like illness [Recovered/Resolved]
  - Confusional state [Unknown]
  - Pancytopenia [Unknown]
  - Bacterial infection [Unknown]
  - Pyrexia [Unknown]
  - Oral mucosa erosion [Unknown]
  - Nail disorder [Unknown]
  - Diffuse alopecia [Unknown]
  - Type IV hypersensitivity reaction [Recovering/Resolving]

NARRATIVE: CASE EVENT DATE: 20181108
